FAERS Safety Report 5926426-2 (Version None)
Quarter: 2008Q4

REPORT INFORMATION
  Report Type: 
  Country: None (occurrence: None)
  Receive Date: 20081017
  Receipt Date: 20081001
  Transmission Date: 20090506
  Serious: Yes (Life-Threatening, Hospitalization, Disabling)
  Sender: FDA-Public Use
  Company Number: GXKR2008GB09449

PATIENT
  Age: 83 Year
  Sex: Female

DRUGS (11)
  1. AMIODARONE HCL [Suspect]
     Indication: ATRIAL FIBRILLATION
     Dosage: 200 MG QD ORAL
     Route: 048
     Dates: start: 20080913, end: 20080917
  2. SIMVASTATIN [Suspect]
     Indication: BLOOD CHOLESTEROL INCREASED
     Dosage: 20 MG UNK ORAL
     Route: 048
     Dates: end: 20080917
  3. CODEINE PHOSPHATE AND ACETAMINOPHEN [Concomitant]
  4. FELODIPINE [Concomitant]
  5. FLUTICASONE PROPIONATE [Concomitant]
  6. IMIPRAMINE [Concomitant]
  7. OMEPRAZOLE [Concomitant]
  8. SALBUTAMOL (SALBUTAMOL) [Concomitant]
  9. SALMETEROL (SALMETEROL) [Concomitant]
  10. VALSARTAN [Concomitant]
  11. ZOPICLONE (ZOPICLONE) [Concomitant]

REACTIONS (2)
  - MALAISE [None]
  - PULMONARY FIBROSIS [None]
